FAERS Safety Report 10065687 (Version 2)
Quarter: 2014Q2

REPORT INFORMATION
  Report Type: Spontaneous
  Country: US (occurrence: US)
  Receive Date: 20140408
  Receipt Date: 20140408
  Transmission Date: 20141212
  Serious: No
  Sender: FDA-Public Use
  Company Number: US-PFIZER INC-2014089923

PATIENT
  Age: 54 Year
  Sex: Male
  Weight: 81.63 kg

DRUGS (2)
  1. EFFEXOR XR [Suspect]
     Indication: DEPRESSION
     Dosage: (150MG AND 75MG), 2X/DAY
  2. EFFEXOR XR [Suspect]
     Indication: ANXIETY
     Dosage: 225 MG (150MG PLUS 75MG), DAILY
     Dates: end: 201403

REACTIONS (10)
  - Eating disorder [Unknown]
  - Activities of daily living impaired [Unknown]
  - Diarrhoea [Unknown]
  - Disturbance in attention [Unknown]
  - Feeling abnormal [Unknown]
  - Hyperhidrosis [Unknown]
  - Insomnia [Unknown]
  - Mania [Unknown]
  - Muscle spasms [Unknown]
  - Paraesthesia [Unknown]
